FAERS Safety Report 8605133-1 (Version None)
Quarter: 2012Q3

REPORT INFORMATION
  Report Type: 
  Country: None (occurrence: None)
  Receive Date: 20120820
  Receipt Date: 20120807
  Transmission Date: 20120928
  Serious: Yes (Hospitalization)
  Sender: FDA-Public Use
  Company Number: FR-BRISTOL-MYERS SQUIBB COMPANY-16846156

PATIENT
  Age: 65 Year
  Sex: Female

DRUGS (11)
  1. ORENCIA [Suspect]
     Indication: RHEUMATOID ARTHRITIS
     Dosage: 06-JAN-2012: 8TH INFUSION
     Route: 042
     Dates: start: 20110705, end: 20120106
  2. DURAGESIC-100 [Concomitant]
  3. ACTONEL [Concomitant]
  4. DAFALGAN CODEINE TABS [Concomitant]
  5. PREDNISONE TAB [Concomitant]
  6. POTASSIUM CHLORIDE [Concomitant]
  7. AMIODARONE HCL [Concomitant]
  8. OMEPRAZOLE [Concomitant]
  9. CALCIUM CARBONATE + COLECALCIFEROL [Concomitant]
  10. SYMBICORT [Concomitant]
  11. PREVISCAN [Concomitant]

REACTIONS (3)
  - RASH [None]
  - PEMPHIGOID [None]
  - RASH MACULO-PAPULAR [None]
